FAERS Safety Report 6610293-8 (Version None)
Quarter: 2010Q1

REPORT INFORMATION
  Report Type: 
  Country: None (occurrence: None)
  Receive Date: 20100302
  Receipt Date: 20090911
  Transmission Date: 20100710
  Serious: No
  Sender: FDA-Public Use
  Company Number: US-TYCO HEALTHCARE/MALLINCKRODT-T200901734

PATIENT
  Age: 26 Year
  Sex: Female

DRUGS (2)
  1. TECHNESCAN [Suspect]
     Indication: BONE SCAN
     Dosage: UNK, SINGLE
     Route: 042
     Dates: start: 20090911, end: 20090911
  2. ULTRA-TECHNEKOW [Suspect]
     Indication: BONE SCAN
     Dosage: 25 MCI, SINGLE
     Route: 042
     Dates: start: 20090911, end: 20090911

REACTIONS (2)
  - BLINDNESS [None]
  - PANIC ATTACK [None]
